FAERS Safety Report 7303814-3 (Version None)
Quarter: 2011Q1

REPORT INFORMATION
  Report Type: 
  Country: None (occurrence: None)
  Receive Date: 20110221
  Receipt Date: 20110214
  Transmission Date: 20110831
  Serious: Yes (Hospitalization, Congenital Anomaly)
  Sender: FDA-Public Use
  Company Number: A0687240A

PATIENT
  Sex: Female
  Weight: 3.8 kg

DRUGS (3)
  1. PAXIL CR [Suspect]
     Indication: DEPRESSION
     Dosage: 25MG PER DAY
     Route: 064
     Dates: start: 20030301, end: 20040101
  2. LEVOTHYROXINE SODIUM [Concomitant]
     Route: 064
  3. INSULIN [Concomitant]
     Route: 064

REACTIONS (11)
  - SUPRAVENTRICULAR TACHYCARDIA [None]
  - HYPOPLASTIC LEFT HEART SYNDROME [None]
  - VENTRICULAR HYPOPLASIA [None]
  - CONGENITAL MITRAL VALVE STENOSIS [None]
  - NODAL ARRHYTHMIA [None]
  - ATRIAL SEPTAL DEFECT [None]
  - CARDIAC TAMPONADE [None]
  - AORTA HYPOPLASIA [None]
  - CONGENITAL AORTIC STENOSIS [None]
  - DRUG EXPOSURE DURING PREGNANCY [None]
  - PULMONARY OEDEMA [None]
